FAERS Safety Report 23775114 (Version 1)
Quarter: 2024Q2

REPORT INFORMATION
  Report Type: Spontaneous
  Country: FR (occurrence: FR)
  Receive Date: 20240423
  Receipt Date: 20240423
  Transmission Date: 20240716
  Serious: Yes (Death, Other)
  Sender: FDA-Public Use
  Company Number: FR-AMGEN-FRASP2024079124

PATIENT

DRUGS (1)
  1. ADALIMUMAB [Suspect]
     Active Substance: ADALIMUMAB\ISOPROPYL ALCOHOL
     Indication: Product used for unknown indication
     Dosage: UNK
     Route: 065

REACTIONS (16)
  - Death [Fatal]
  - Myocarditis [Unknown]
  - Ventricular arrhythmia [Unknown]
  - Still^s disease [Unknown]
  - Pericardial effusion [Unknown]
  - HIV infection [Unknown]
  - Lyme disease [Unknown]
  - Arrhythmia supraventricular [Unknown]
  - Parvovirus B19 test positive [Unknown]
  - Antiphospholipid antibodies positive [Unknown]
  - Myocardial fibrosis [Unknown]
  - Respiratory symptom [Unknown]
  - Lymphocytosis [Unknown]
  - Blood immunoglobulin M increased [Unknown]
  - COVID-19 [Unknown]
  - Epstein-Barr virus infection [Unknown]
